FAERS Safety Report 12963177 (Version 4)
Quarter: 2018Q3

REPORT INFORMATION
  Report Type: Spontaneous
  Country: US (occurrence: US)
  Receive Date: 20161122
  Receipt Date: 20180821
  Transmission Date: 20181010
  Serious: Yes (Hospitalization, Other)
  Sender: FDA-Public Use
  Company Number: US-CIPLA LTD.-2016US21266

PATIENT

DRUGS (3)
  1. IBUPROFEN. [Suspect]
     Active Substance: IBUPROFEN
     Indication: PRODUCT USED FOR UNKNOWN INDICATION
     Dosage: UNK
     Route: 065
  2. MELOXICAM. [Suspect]
     Active Substance: MELOXICAM
     Indication: PRODUCT USED FOR UNKNOWN INDICATION
     Dosage: UNK
     Route: 065
  3. CYCLOBENZAPRINE. [Suspect]
     Active Substance: CYCLOBENZAPRINE
     Indication: PRODUCT USED FOR UNKNOWN INDICATION
     Dosage: UNK
     Route: 065

REACTIONS (10)
  - Atrial fibrillation [Unknown]
  - Electrocardiogram ST segment elevation [Recovered/Resolved]
  - Nausea [Unknown]
  - Abdominal distension [Unknown]
  - Disorientation [Unknown]
  - Overdose [Unknown]
  - Anticholinergic syndrome [Unknown]
  - Retching [Unknown]
  - Dyspnoea [Unknown]
  - Ileus [Recovering/Resolving]
